FAERS Safety Report 9028684 (Version 1)
Quarter: 2013Q1

REPORT INFORMATION
  Report Type: Spontaneous
  Country: ZA (occurrence: ZA)
  Receive Date: 20130124
  Receipt Date: 20130124
  Transmission Date: 20140127
  Serious: Yes (Death)
  Sender: FDA-Public Use
  Company Number: PHHY2013ZA006277

PATIENT
  Sex: Female

DRUGS (9)
  1. ACLASTA [Suspect]
     Indication: OSTEOPOROSIS
     Dosage: 5 MG/100ML
     Route: 042
     Dates: start: 20110124
  2. ACLASTA [Suspect]
     Dosage: 5 MG/100ML
     Route: 042
     Dates: start: 20120216
  3. MEDROL [Concomitant]
     Dosage: UNK UKN, UNK
     Dates: start: 2002
  4. CELEBREX [Concomitant]
     Indication: INFLAMMATION
     Dosage: UNK UKN, UNK
     Dates: start: 201008
  5. ZIAK [Concomitant]
     Indication: HYPERTENSION
     Dosage: UNK UKN, UNK
     Dates: start: 2010
  6. B-CAL-D [Concomitant]
     Dosage: UNK UKN, UNK
     Dates: start: 20110124
  7. CALCIFEROL [Concomitant]
     Dosage: UNK UKN, UNK
  8. VIT D [Concomitant]
     Dosage: UNK UKN, UNK
  9. ELTROXIN [Concomitant]
     Indication: HYPOTHYROIDISM
     Dosage: UNK UKN, UNK

REACTIONS (1)
  - Systemic lupus erythematosus [Fatal]
